FAERS Safety Report 7362040-2 (Version None)
Quarter: 2011Q1

REPORT INFORMATION
  Report Type: 
  Country: None (occurrence: None)
  Receive Date: 20110318
  Receipt Date: 20110308
  Transmission Date: 20110831
  Serious: Yes (Hospitalization)
  Sender: FDA-Public Use
  Company Number: US-JNJFOC-20091008524

PATIENT
  Sex: Male
  Weight: 31.9 kg

DRUGS (5)
  1. PREDNISONE [Concomitant]
  2. 5-AMINOSALICYLIC ACID [Concomitant]
     Route: 048
  3. METRONIDAZOLE [Concomitant]
  4. REMICADE [Suspect]
     Indication: CROHN'S DISEASE
     Dosage: TOTAL 14 DOSES
     Route: 042
     Dates: start: 20070808, end: 20090821
  5. REMICADE [Suspect]
     Route: 042
     Dates: start: 20070808, end: 20090821

REACTIONS (1)
  - ASTHMA [None]
